FAERS Safety Report 19177066 (Version 1)
Quarter: 2021Q2

REPORT INFORMATION
  Report Type: Spontaneous
  Country: TW (occurrence: TW)
  Receive Date: 20210424
  Receipt Date: 20210424
  Transmission Date: 20210717
  Serious: Yes (Death, Other)
  Sender: FDA-Public Use
  Company Number: NVSC2021TW092486

PATIENT
  Age: 46 Year

DRUGS (7)
  1. GEMCITABINE. [Suspect]
     Active Substance: GEMCITABINE
     Indication: UTERINE LEIOMYOSARCOMA
     Dosage: UNK
     Route: 065
     Dates: start: 20200803, end: 20200812
  2. DOCETAXEL. [Suspect]
     Active Substance: DOCETAXEL
     Indication: UTERINE LEIOMYOSARCOMA
     Dosage: UNK
     Route: 065
     Dates: start: 20200803, end: 20200812
  3. VOTRIENT [Suspect]
     Active Substance: PAZOPANIB HYDROCHLORIDE
     Indication: UTERINE LEIOMYOSARCOMA
     Dosage: 400 MG, QD
     Route: 065
     Dates: start: 20200402, end: 20201205
  4. IFOSFAMIDE. [Concomitant]
     Active Substance: IFOSFAMIDE
     Indication: UTERINE LEIOMYOSARCOMA
     Dosage: UNK
     Route: 065
     Dates: start: 20200325
  5. CISPLATIN. [Suspect]
     Active Substance: CISPLATIN
     Dosage: UNK
     Route: 065
     Dates: start: 20200325
  6. CISPLATIN. [Suspect]
     Active Substance: CISPLATIN
     Indication: UTERINE LEIOMYOSARCOMA
     Dosage: UNK
     Route: 065
     Dates: start: 20191111, end: 20191223
  7. PACLITAXEL. [Suspect]
     Active Substance: PACLITAXEL
     Indication: UTERINE LEIOMYOSARCOMA
     Dosage: UNK
     Route: 065
     Dates: start: 20191111, end: 20191223

REACTIONS (3)
  - Leiomyosarcoma recurrent [Unknown]
  - Death [Fatal]
  - Product use in unapproved indication [Unknown]

NARRATIVE: CASE EVENT DATE: 20200605
